FAERS Safety Report 4928312-3 (Version None)
Quarter: 2006Q1

REPORT INFORMATION
  Report Type: 
  Country: None (occurrence: None)
  Receive Date: 20060223
  Receipt Date: 20060202
  Transmission Date: 20060701
  Serious: Yes (Hospitalization)
  Sender: FDA-Public Use
  Company Number: US200602000793

PATIENT
  Sex: Male

DRUGS (5)
  1. HUMULIN 70/30 [Suspect]
     Indication: DIABETES MELLITUS
     Dates: start: 20051001
  2. HUMULIN REGULAR (HUMAN INSULIN [Suspect]
     Indication: DIABETES MELLITUS
     Dates: start: 20051201
  3. LANTUS [Concomitant]
  4. VALTREX [Concomitant]
  5. PREDNISONE TAB [Concomitant]

REACTIONS (2)
  - ENTERITIS INFECTIOUS [None]
  - IMMUNE SYSTEM DISORDER [None]
